FAERS Safety Report 8756261 (Version 1)
Quarter: 2012Q4

REPORT INFORMATION
  Report Type: 
  Country: JP (occurrence: JP)
  Receive Date: 20120828
  Receipt Date: 20120828
  Transmission Date: 20130627
  Serious: Yes (Death)
  Sender: FDA-Public Use
  Company Number: JP-ELI_LILLY_AND_COMPANY-JP201108001776

PATIENT
  Age: 45 Year
  Sex: Female

DRUGS (5)
  1. GEMZAR [Suspect]
     Dosage: UNK
     Route: 042
  2. GEMZAR [Suspect]
     Dosage: 1000 mg, other
     Route: 042
  3. TS 1 [Concomitant]
     Indication: PANCREATIC CARCINOMA STAGE IV
     Dosage: 100 mg, qd
  4. TS 1 [Concomitant]
     Dosage: 80 mg, other
  5. CISPLATIN [Concomitant]
     Indication: ADENOCARCINOMA
     Dosage: 20 mg, twice

REACTIONS (8)
  - Malignant ascites [Fatal]
  - Tumour invasion [Fatal]
  - Induration [Unknown]
  - Pleural effusion [Unknown]
  - C-reactive protein increased [Unknown]
  - Nausea [Unknown]
  - Decreased appetite [Unknown]
  - Pyrexia [Unknown]
